FAERS Safety Report 7202867-0 (Version None)
Quarter: 2010Q4

REPORT INFORMATION
  Report Type: 
  Country: None (occurrence: None)
  Receive Date: 20101130
  Receipt Date: 20101122
  Transmission Date: 20110411
  Serious: Yes (Hospitalization)
  Sender: FDA-Public Use
  Company Number: CA-145102

PATIENT
  Sex: Female

DRUGS (1)
  1. WINRHO [Suspect]
     Indication: IDIOPATHIC THROMBOCYTOPENIC PURPURA
     Dosage: (3000 ?G)
     Dates: start: 20101027, end: 20101027

REACTIONS (4)
  - ANTIBODY TEST POSITIVE [None]
  - FALL [None]
  - PRODUCT QUALITY ISSUE [None]
  - SUBDURAL HAEMATOMA [None]
